FAERS Safety Report 14940405 (Version 2)
Quarter: 2018Q2

REPORT INFORMATION
  Report Type: Report from Study
  Country: DE (occurrence: DE)
  Receive Date: 20180525
  Receipt Date: 20180619
  Transmission Date: 20180711
  Serious: Yes (Death)
  Sender: FDA-Public Use
  Company Number: PHHY2018DE008193

PATIENT
  Age: 73 Year
  Sex: Male
  Weight: 75 kg

DRUGS (17)
  1. EXJADE [Suspect]
     Active Substance: DEFERASIROX
     Dosage: 360 MG, QD (14.4 MG/KG BODYWEIGHT/DAY EQUAL TO 3 TABLETS A 360 MG)
     Route: 048
     Dates: start: 20170425, end: 20170718
  2. BISOPROLOL [Concomitant]
     Active Substance: BISOPROLOL
     Indication: HYPERTENSION
     Dosage: 1.25 MG/ DAY (0-0-0.25)
     Route: 065
  3. IRBESARTAN. [Concomitant]
     Active Substance: IRBESARTAN
     Indication: HYPERTENSION
     Dosage: 150 OT, QD (PER DAY) (0.5-0-0)
     Route: 065
  4. EXJADE [Suspect]
     Active Substance: DEFERASIROX
     Dosage: 360 MG, QD (14.4 MG/KG BODYWEIGHT/DAY EQUAL TO 3 TABLETS A 360 MG)
     Route: 048
     Dates: start: 20171024, end: 20180125
  5. SEEBRI BREEZHALER [Concomitant]
     Active Substance: GLYCOPYRROLATE
     Indication: CHRONIC OBSTRUCTIVE PULMONARY DISEASE
     Dosage: UNK UNK, QD (1-0-0)
     Route: 065
  6. EXJADE [Suspect]
     Active Substance: DEFERASIROX
     Dosage: 360 MG, QD (14.4 MG/KG BODYWEIGHT/DAY EQUAL TO 3 TABLETS A 360 MG)
     Route: 048
     Dates: start: 20170110, end: 20170424
  7. EXJADE [Suspect]
     Active Substance: DEFERASIROX
     Dosage: 360 MG, QD (14.4 MG/KG BODYWEIGHT/DAY EQUAL TO 3 TABLETS A 360 MG)
     Route: 048
     Dates: start: 20170719, end: 20171023
  8. EXJADE [Suspect]
     Active Substance: DEFERASIROX
     Indication: MYELODYSPLASTIC SYNDROME
     Dosage: 360 MG, QD (14.4 MG/KG BODYWEIGHT/DAY EQUAL TO 3 TABLETS A 360 MG)
     Route: 048
     Dates: start: 20160722, end: 20160817
  9. FUROSEMIDE. [Concomitant]
     Active Substance: FUROSEMIDE
     Indication: RENAL FAILURE
     Dosage: 40 OT, QD (1-0-0)
     Route: 065
  10. SPIRONOLACTONE. [Concomitant]
     Active Substance: SPIRONOLACTONE
     Indication: CHRONIC OBSTRUCTIVE PULMONARY DISEASE
     Dosage: 50 MG, QD (PER DAY) (1-0-0)
     Route: 065
  11. ATMADISC [Concomitant]
     Active Substance: FLUTICASONE PROPIONATE\SALMETEROL XINAFOATE
     Indication: CHRONIC OBSTRUCTIVE PULMONARY DISEASE
     Dosage: 50250 OT, BID (1-0-1)
     Route: 065
  12. EXJADE [Suspect]
     Active Substance: DEFERASIROX
     Dosage: 360 MG, QD (14.4 MG/KG BODYWEIGHT/DAY EQUAL TO 3 TABLETS A 360 MG)
     Route: 048
     Dates: start: 20180126, end: 20180417
  13. VITAMIN B6 [Concomitant]
     Active Substance: PYRIDOXINE HYDROCHLORIDE
     Indication: LIVER DISORDER
     Dosage: UNK UNK, QD (1-0-0)
     Route: 065
  14. EXJADE [Suspect]
     Active Substance: DEFERASIROX
     Indication: ANAEMIA
     Dosage: 360 MG, QD (14.4 MG/KG BODYWEIGHT/DAY EQUAL TO 2 DF A 360 MG)
     Route: 048
     Dates: start: 20160818, end: 20170109
  15. DIGITOXIN [Concomitant]
     Active Substance: DIGITOXIN
     Indication: ATRIAL FIBRILLATION
     Dosage: 0.07 OT, QD (1-0-0)
     Route: 065
  16. METFORMIN [Concomitant]
     Active Substance: METFORMIN HYDROCHLORIDE
     Indication: TYPE 2 DIABETES MELLITUS
     Dosage: 850 OT, QD (PER DAY) (0-0-1)
     Route: 065
  17. ELIQUIS [Concomitant]
     Active Substance: APIXABAN
     Indication: PRODUCT USED FOR UNKNOWN INDICATION
     Dosage: 10 MG, BID (PER DAY) (1-0-1)
     Route: 065

REACTIONS (1)
  - Death [Fatal]

NARRATIVE: CASE EVENT DATE: 20180522
